FAERS Safety Report 6139199-8 (Version None)
Quarter: 2009Q2

REPORT INFORMATION
  Report Type: 
  Country: None (occurrence: None)
  Receive Date: 20090401
  Receipt Date: 20090326
  Transmission Date: 20091009
  Serious: Yes (Other)
  Sender: FDA-Public Use
  Company Number: GB-JNJFOC-20090306950

PATIENT
  Age: 33 Year
  Sex: Male

DRUGS (3)
  1. RISPERDAL [Suspect]
     Indication: ACUTE PSYCHOSIS
     Route: 048
  2. VALPROATE SODIUM [Concomitant]
     Route: 065
  3. FISH OIL [Concomitant]
     Route: 065

REACTIONS (1)
  - COMPARTMENT SYNDROME [None]
